FAERS Safety Report 7259643-2 (Version None)
Quarter: 2011Q1

REPORT INFORMATION
  Report Type: 
  Country: None (occurrence: None)
  Receive Date: 20110120
  Receipt Date: 20110112
  Transmission Date: 20110831
  Serious: Yes (Hospitalization, Other)
  Sender: FDA-Public Use
  Company Number: MOZO-1000301

PATIENT
  Age: 62 Year
  Sex: Male
  Weight: 102 kg

DRUGS (7)
  1. ATENOLOL [Concomitant]
  2. MOZOBIL [Suspect]
     Indication: HAEMATOPOIETIC STEM CELL MOBILISATION
     Dosage: 240 MCG/KG, QD , SUBCUTANEOUS
     Route: 058
     Dates: start: 20091221, end: 20091222
  3. OXYCONTIN [Concomitant]
  4. OXYCODONE HCL [Concomitant]
  5. NEUPOGEN [Concomitant]
  6. LISINOPRIL [Concomitant]
  7. BENDROFLUAZIDE [Concomitant]

REACTIONS (2)
  - LEUKOCYTOSIS [None]
  - MYOCARDIAL INFARCTION [None]
